FAERS Safety Report 6828050-6 (Version None)
Quarter: 2010Q3

REPORT INFORMATION
  Report Type: 
  Country: None (occurrence: None)
  Receive Date: 20100709
  Receipt Date: 20100630
  Transmission Date: 20110219
  Serious: Yes (Hospitalization)
  Sender: FDA-Public Use
  Company Number: B0662356A

PATIENT
  Age: 79 Year
  Sex: Male
  Weight: 52 kg

DRUGS (1)
  1. VALTREX [Suspect]
     Indication: HERPES ZOSTER
     Dosage: 3G PER DAY
     Route: 048
     Dates: start: 20100619, end: 20100622

REACTIONS (2)
  - ALTERED STATE OF CONSCIOUSNESS [None]
  - RENAL DISORDER [None]
